FAERS Safety Report 15312270 (Version 2)
Quarter: 2018Q3

REPORT INFORMATION
  Report Type: Spontaneous
  Country: US (occurrence: US)
  Receive Date: 20180823
  Receipt Date: 20180830
  Transmission Date: 20181010
  Serious: Yes (Other)
  Sender: FDA-Public Use
  Company Number: US-PFIZER INC-2018336793

PATIENT
  Age: 7 Year
  Sex: Male

DRUGS (5)
  1. VINCRISTINE SULFATE. [Suspect]
     Active Substance: VINCRISTINE SULFATE
     Indication: HODGKIN^S DISEASE STAGE IV
     Dosage: 1.4 MG/M2, CYCLIC, (DAYS 1, 8, MAX DOSE 2 MG) (CYCLES 2, 4, 6, 8)
     Route: 042
  2. PROCARBAZINE [Suspect]
     Active Substance: PROCARBAZINE
     Indication: HODGKIN^S DISEASE STAGE IV
     Dosage: 100 MG/M2, CYCLIC, (DAYS 1?14) (CYCLES 2, 4, 6, 8)
     Route: 048
  3. GRANULOCYTE COLONY STIMULATING FACTOR [Concomitant]
     Active Substance: GRANULOCYTE COLONY-STIMULATING FACTOR NOS
     Indication: SEPSIS
  4. CYCLOPHOSPHAMIDE. [Suspect]
     Active Substance: CYCLOPHOSPHAMIDE
     Indication: HODGKIN^S DISEASE STAGE IV
     Dosage: 600 MG/M2, CYCLIC, (DAYS 1, 8) (CYCLES 2, 4, 6, 8)
     Route: 042
  5. GRANULOCYTE COLONY STIMULATING FACTOR [Concomitant]
     Active Substance: GRANULOCYTE COLONY-STIMULATING FACTOR NOS
     Indication: HODGKIN^S DISEASE STAGE IV
     Dosage: UNK
     Route: 048

REACTIONS (3)
  - Febrile neutropenia [Unknown]
  - Bone marrow failure [Unknown]
  - Splenic infection fungal [Unknown]
